FAERS Safety Report 13644862 (Version 1)
Quarter: 2017Q2

REPORT INFORMATION
  Report Type: Spontaneous
  Country: US (occurrence: US)
  Receive Date: 20170612
  Receipt Date: 20170612
  Transmission Date: 20170830
  Serious: No
  Sender: FDA-Public Use
  Company Number: US-ROCHE-1259890

PATIENT
  Sex: Female

DRUGS (1)
  1. XELODA [Suspect]
     Active Substance: CAPECITABINE
     Indication: PANCREATIC CARCINOMA
     Dosage: 1500 MG IN MORNING (AM) 1000  MG IN EVENING (PM).
     Route: 065
     Dates: start: 20130729

REACTIONS (1)
  - Paraesthesia [Not Recovered/Not Resolved]
